FAERS Safety Report 25426438 (Version 1)
Quarter: 2025Q2

REPORT INFORMATION
  Report Type: Spontaneous
  Country: GB (occurrence: GB)
  Receive Date: 20250612
  Receipt Date: 20250612
  Transmission Date: 20250717
  Serious: Yes (Other)
  Sender: ESPERION THERAPEUTICS
  Company Number: None

PATIENT

DRUGS (9)
  1. BEMPEDOIC ACID [Suspect]
     Active Substance: BEMPEDOIC ACID
     Indication: Ill-defined disorder
     Dosage: 180 MG, QD (TAKE ONE DAILY)
     Route: 065
     Dates: start: 20240718
  2. COLCHICINE [Concomitant]
     Active Substance: COLCHICINE
     Indication: Ill-defined disorder
     Route: 065
     Dates: start: 20250529
  3. PREDNISOLONE [Concomitant]
     Active Substance: PREDNISOLONE
     Indication: Ill-defined disorder
     Dosage: 6 DOSAGE FORM, QD (TAKE SIX TABLETS AS A SINGLE DOSE ONCE DAILY IN.)
     Route: 065
     Dates: start: 20250414, end: 20250417
  4. ALLOPURINOL [Concomitant]
     Active Substance: ALLOPURINOL
     Indication: Ill-defined disorder
     Dosage: 2 DOSAGE FORM, QD (TAKE TWO TABLETS ONCE A DAY AFTER FOOD, TO HELP...)
     Route: 065
     Dates: start: 20190408
  5. LANSOPRAZOLE [Concomitant]
     Active Substance: LANSOPRAZOLE
     Indication: Ill-defined disorder
     Dosage: 1 DOSAGE FORM, QD (1 ONCE A DAY)
     Route: 065
     Dates: start: 20190408, end: 20250602
  6. ACYCLOVIR [Concomitant]
     Active Substance: ACYCLOVIR
     Indication: Ill-defined disorder
     Dosage: 3 DOSAGE FORM, TID (TAKE ONE TABLET THREE TIMES A DAY FOR 5 DAYS)
     Route: 065
     Dates: start: 20190624
  7. SILDENAFIL [Concomitant]
     Active Substance: SILDENAFIL
     Indication: Ill-defined disorder
     Route: 065
     Dates: start: 20200625, end: 20250602
  8. TAMSULOSIN HYDROCHLORIDE [Concomitant]
     Active Substance: TAMSULOSIN HYDROCHLORIDE
     Indication: Ill-defined disorder
     Dosage: 1 DOSAGE FORM, QD (TAKE ONE DAILY)
     Route: 065
     Dates: start: 20210701
  9. ASPIRIN [Concomitant]
     Active Substance: ASPIRIN
     Indication: Ill-defined disorder
     Dosage: 1 DOSAGE FORM, QD (TAKE ONE DAILY)
     Route: 065
     Dates: start: 20241014

REACTIONS (1)
  - Arthralgia [Recovered/Resolved]
